FAERS Safety Report 5922556-X (Version None)
Quarter: 2008Q4

REPORT INFORMATION
  Report Type: 
  Country: None (occurrence: None)
  Receive Date: 20081017
  Receipt Date: 20081009
  Transmission Date: 20090506
  Serious: Yes (Death, Disabling, Other)
  Sender: FDA-Public Use
  Company Number: PHHY2008JP03181

PATIENT
  Sex: Male

DRUGS (12)
  1. ZOMETA [Suspect]
     Indication: PROSTATE CANCER
     Dosage: 4 MG, QMO
     Route: 042
     Dates: start: 20070328, end: 20071012
  2. LOPERAMIDE HYDROCHLORIDE [Concomitant]
     Indication: DIARRHOEA
     Route: 048
  3. TIMOPTIC [Concomitant]
     Indication: CATARACT
     Route: 047
  4. SANPILO [Concomitant]
     Indication: CATARACT
     Route: 047
  5. XALATAN [Concomitant]
     Indication: CATARACT
     Route: 047
  6. BROTIZOLAM [Concomitant]
     Indication: INSOMNIA
     Dosage: 1 DF
     Route: 048
  7. CASODEX [Concomitant]
     Dates: end: 20080201
  8. ODYNE [Concomitant]
  9. ESTRACYT [Concomitant]
  10. LEUPROLIDE ACETATE [Concomitant]
     Dates: start: 20071109
  11. RADIATION THERAPY [Concomitant]
     Indication: PROSTATE CANCER
  12. KETOPROFEN [Concomitant]
     Indication: BACK PAIN
     Dosage: UNK
     Route: 061
     Dates: start: 20031211, end: 20080301

REACTIONS (12)
  - BLOOD ALBUMIN INCREASED [None]
  - BLOOD CREATININE INCREASED [None]
  - BLOOD LACTATE DEHYDROGENASE INCREASED [None]
  - BLOOD UREA INCREASED [None]
  - HYPOCALCAEMIA [None]
  - MALIGNANT NEOPLASM PROGRESSION [None]
  - MONOCYTE COUNT INCREASED [None]
  - PLATELET COUNT DECREASED [None]
  - PROSTATE CANCER [None]
  - PROSTATIC SPECIFIC ANTIGEN INCREASED [None]
  - RED BLOOD CELL COUNT DECREASED [None]
  - RENAL IMPAIRMENT [None]
